FAERS Safety Report 14880318 (Version 1)
Quarter: 2018Q2

REPORT INFORMATION
  Report Type: Report from Study
  Country: CA (occurrence: CA)
  Receive Date: 20180511
  Receipt Date: 20180511
  Transmission Date: 20180711
  Serious: Yes (Other)
  Sender: FDA-Public Use
  Company Number: CA-JNJFOC-20180511518

PATIENT
  Age: 63 Year
  Sex: Male
  Weight: 99.79 kg

DRUGS (2)
  1. STELARA [Suspect]
     Active Substance: USTEKINUMAB
     Indication: PSORIASIS
     Dosage: STRENGTH = 45 MG
     Route: 058
     Dates: start: 20111115
  2. STELARA [Suspect]
     Active Substance: USTEKINUMAB
     Indication: RHEUMATOID ARTHRITIS
     Dosage: STRENGTH = 45 MG
     Route: 058
     Dates: start: 20111115

REACTIONS (1)
  - Prostate infection [Unknown]

NARRATIVE: CASE EVENT DATE: 20180428
